FAERS Safety Report 12526748 (Version 1)
Quarter: 2016Q3

REPORT INFORMATION
  Report Type: Spontaneous
  Country: US (occurrence: None)
  Receive Date: 20160701
  Receipt Date: 20160701
  Transmission Date: 20161109
  Serious: Yes (Hospitalization)
  Sender: FDA-Public Use
  Company Number: None

PATIENT
  Age: 63 Year
  Sex: Female

DRUGS (4)
  1. ACYCLOVIR. [Concomitant]
     Active Substance: ACYCLOVIR
  2. CAPECITABINE 500MG TAB TEVA [Suspect]
     Active Substance: CAPECITABINE
     Indication: GLOTTIS CARCINOMA
     Dosage: 2000MG DAYS 1-14 OF 21 DAY CYCLE BID PO
     Route: 048
     Dates: start: 20160503
  3. LISINOPRIL. [Concomitant]
     Active Substance: LISINOPRIL
  4. PROBIOTIC [Concomitant]
     Active Substance: PROBIOTICS NOS

REACTIONS (2)
  - Pain in extremity [None]
  - Gastrointestinal inflammation [None]

NARRATIVE: CASE EVENT DATE: 20160610
